FAERS Safety Report 16778906 (Version 1)
Quarter: 2019Q3

REPORT INFORMATION
  Report Type: Spontaneous
  Country: RO (occurrence: RO)
  Receive Date: 20190906
  Receipt Date: 20190906
  Transmission Date: 20191005
  Serious: Yes (Death)
  Sender: FDA-Public Use
  Company Number: RO-TEVA-2019-RO-1102933

PATIENT
  Age: 68 Year
  Sex: Female

DRUGS (2)
  1. EPIRUBICIN [Suspect]
     Active Substance: EPIRUBICIN
     Dosage: 100 M/M2
  2. CYCLOPHOSPHAMIDE. [Suspect]
     Active Substance: CYCLOPHOSPHAMIDE
     Dosage: 600 MG/M2

REACTIONS (9)
  - Acute kidney injury [Fatal]
  - Bradycardia [Fatal]
  - Secondary immunodeficiency [Fatal]
  - Pancreatitis acute [Fatal]
  - Clostridium difficile infection [Fatal]
  - Septic shock [Fatal]
  - Metabolic acidosis [Fatal]
  - Hypotension [Fatal]
  - Cardiac arrest [Fatal]
